FAERS Safety Report 7084407-2 (Version None)
Quarter: 2010Q4

REPORT INFORMATION
  Report Type: 
  Country: None (occurrence: None)
  Receive Date: 20101104
  Receipt Date: 20101011
  Transmission Date: 20110411
  Serious: Yes (Congenital Anomaly, Other)
  Sender: FDA-Public Use
  Company Number: US-PFIZER INC-2007070790

PATIENT
  Sex: Male

DRUGS (7)
  1. NELFINAVIR MESYLATE [Suspect]
     Indication: HIV INFECTION
     Route: 065
  2. LAMIVUDINE (EPIVIR HBV) [Suspect]
     Route: 065
  3. RITONAVIR [Suspect]
  4. SAQUINAVIR [Suspect]
     Route: 065
  5. AZT [Suspect]
     Route: 065
  6. ATAZANAVIR [Suspect]
     Route: 065
  7. ALCOHOL [Concomitant]

REACTIONS (2)
  - CONGENITAL HEPATOMEGALY [None]
  - HYDROCELE [None]
